FAERS Safety Report 4594701-2 (Version None)
Quarter: 2005Q1

REPORT INFORMATION
  Report Type: 
  Country: None (occurrence: None)
  Receive Date: 20050301
  Receipt Date: 20050113
  Transmission Date: 20050727
  Serious: Yes (Life-Threatening, Hospitalization, Other)
  Sender: FDA-Public Use
  Company Number: US-BRISTOL-MYERS SQUIBB COMPANY-12823993

PATIENT
  Age: 80 Year
  Sex: Male
  Weight: 82 kg

DRUGS (5)
  1. ERBITUX [Suspect]
     Indication: NEOPLASM MALIGNANT
     Route: 042
     Dates: start: 20041209, end: 20041209
  2. APREPITANT [Concomitant]
     Indication: PREMEDICATION
     Dates: start: 20041209, end: 20041209
  3. DIPHENHYDRAMINE HCL [Concomitant]
     Indication: PREMEDICATION
     Dates: start: 20041209, end: 20041209
  4. DOLASETRON [Concomitant]
     Indication: PREMEDICATION
     Dates: start: 20041209, end: 20041209
  5. HYDROCORTISONE [Concomitant]
     Indication: PREMEDICATION
     Route: 042
     Dates: start: 20041209, end: 20041209

REACTIONS (1)
  - ANAPHYLACTIC SHOCK [None]
